FAERS Safety Report 14873535 (Version 1)
Quarter: 2018Q2

REPORT INFORMATION
  Report Type: Spontaneous
  Country: DE (occurrence: DE)
  Receive Date: 20180510
  Receipt Date: 20180510
  Transmission Date: 20180711
  Serious: Yes (Other)
  Sender: FDA-Public Use
  Company Number: DE-MERCK KGAA-2047528

PATIENT
  Age: 65 Year
  Sex: Female

DRUGS (2)
  1. NOVOTHYROX [Suspect]
     Active Substance: LEVOTHYROXINE SODIUM
     Indication: THYROID DISORDER
     Dates: start: 1984
  2. NOVOTHYROX [Suspect]
     Active Substance: LEVOTHYROXINE SODIUM

REACTIONS (17)
  - Arrhythmia [None]
  - Fluid retention [None]
  - Speech disorder [None]
  - Palpitations [None]
  - Diarrhoea [None]
  - Skin disorder [None]
  - Pain of skin [None]
  - Swelling face [None]
  - Hypokinesia [None]
  - Disturbance in attention [None]
  - Arthropathy [None]
  - Hypersensitivity [None]
  - Drug dose omission [None]
  - Blood insulin increased [None]
  - Insomnia [None]
  - Eyelid oedema [None]
  - Protein total decreased [None]

NARRATIVE: CASE EVENT DATE: 20180502
